FAERS Safety Report 23886526 (Version 1)
Quarter: 2024Q2

REPORT INFORMATION
  Report Type: Spontaneous
  Country: US (occurrence: US)
  Receive Date: 20240522
  Receipt Date: 20240522
  Transmission Date: 20240716
  Serious: Yes (Other)
  Sender: FDA-Public Use
  Company Number: US-BRISTOL-MYERS SQUIBB COMPANY-2024-080085

PATIENT
  Age: 72 Year
  Sex: Male
  Weight: 131.54 kg

DRUGS (46)
  1. REVLIMID [Suspect]
     Active Substance: LENALIDOMIDE
     Indication: Plasma cell myeloma
     Dates: start: 20100716
  2. REVLIMID [Suspect]
     Active Substance: LENALIDOMIDE
     Dates: start: 20100924, end: 20160912
  3. ACYCLOVIR [Concomitant]
     Active Substance: ACYCLOVIR
     Indication: Product used for unknown indication
     Dates: start: 202202
  4. LIPITOR [Concomitant]
     Active Substance: ATORVASTATIN CALCIUM
     Indication: Product used for unknown indication
     Dosage: 82 DAYS
     Route: 048
  5. CYANOCOBALAMIN [Concomitant]
     Active Substance: CYANOCOBALAMIN
     Indication: Product used for unknown indication
     Dosage: SHOT
     Route: 048
  6. CYANOCOBALAMIN [Concomitant]
     Active Substance: CYANOCOBALAMIN
     Dosage: 100MCG SUBLINGUAL LOZENGE
     Route: 048
  7. BUMETANIDE [Concomitant]
     Active Substance: BUMETANIDE
     Indication: Product used for unknown indication
     Route: 048
  8. COLCHICINE;PROBENECID [Concomitant]
     Indication: Gout
     Dosage: 0.5-500MG
  9. LANTUS [Concomitant]
     Active Substance: INSULIN GLARGINE
     Indication: Product used for unknown indication
     Dosage: 30 UNITS AT NIGHT
  10. GLYBURIDE [Concomitant]
     Active Substance: GLYBURIDE
     Indication: Product used for unknown indication
     Route: 048
  11. METFORMIN [Concomitant]
     Active Substance: METFORMIN HYDROCHLORIDE
     Indication: Product used for unknown indication
     Route: 048
  12. ACTOS [Concomitant]
     Active Substance: PIOGLITAZONE HYDROCHLORIDE
     Indication: Product used for unknown indication
     Route: 048
  13. LISINOPRIL [Concomitant]
     Active Substance: LISINOPRIL
     Indication: Product used for unknown indication
     Route: 048
  14. TRAMADOL [Concomitant]
     Active Substance: TRAMADOL\TRAMADOL HYDROCHLORIDE
     Indication: Product used for unknown indication
     Dosage: 1-2-TAB PO AT 6
     Route: 048
  15. TRAMADOL [Concomitant]
     Active Substance: TRAMADOL\TRAMADOL HYDROCHLORIDE
     Dosage: 1-2-TAB PO AT 6
     Route: 048
  16. TRAMADOL [Concomitant]
     Active Substance: TRAMADOL\TRAMADOL HYDROCHLORIDE
     Dosage: 1-2-TAB PO AT 6
     Route: 048
  17. BACLOFEN [Concomitant]
     Active Substance: BACLOFEN
     Indication: Product used for unknown indication
  18. ALLOPURINOL [Concomitant]
     Active Substance: ALLOPURINOL
     Indication: Gout
     Route: 048
  19. PANTOPRAZOLE [Concomitant]
     Active Substance: PANTOPRAZOLE
     Indication: Product used for unknown indication
     Dosage: DELAYED RELEASE, TABLET
     Route: 048
  20. DEXAMETHASONE [Concomitant]
     Active Substance: DEXAMETHASONE
     Indication: Product used for unknown indication
     Dates: start: 20220201, end: 20220725
  21. DEXAMETHASONE [Concomitant]
     Active Substance: DEXAMETHASONE
     Dates: start: 20220818
  22. DARZALEX FASPRO [Concomitant]
     Active Substance: DARATUMUMAB\HYALURONIDASE-FIHJ
     Indication: Plasma cell myeloma
     Dates: start: 202202
  23. DARZALEX FASPRO [Concomitant]
     Active Substance: DARATUMUMAB\HYALURONIDASE-FIHJ
     Dates: start: 20220818
  24. CALCIUM [Concomitant]
     Active Substance: CALCIUM
     Indication: Product used for unknown indication
     Dates: start: 202202
  25. D3 VITAMIN [Concomitant]
     Indication: Product used for unknown indication
     Dosage: DOSE- 5000 UNITS
     Route: 048
     Dates: start: 202202
  26. FERROUS SULFATE [Concomitant]
     Active Substance: FERROUS SULFATE
     Indication: Product used for unknown indication
     Dosage: 65MG IRON
     Route: 048
     Dates: start: 202202
  27. AREDIA [Concomitant]
     Active Substance: PAMIDRONATE DISODIUM
     Indication: Plasma cell myeloma
     Dates: start: 20100813
  28. EMPLICITI [Concomitant]
     Active Substance: ELOTUZUMAB
     Dates: start: 20220201, end: 20220725
  29. ASPIRIN [Concomitant]
     Active Substance: ASPIRIN
  30. ATORVASTATIN [Concomitant]
     Active Substance: ATORVASTATIN
  31. BIOFREEZE [Concomitant]
     Active Substance: MENTHOL
     Route: 061
  32. CEPHALEXIN [Concomitant]
     Active Substance: CEPHALEXIN
  33. CLARITHROMYCIN [Concomitant]
     Active Substance: CLARITHROMYCIN
  34. CODEINE\GUAIFENESIN [Concomitant]
     Active Substance: CODEINE\GUAIFENESIN
     Dosage: DOSE- 10MG, 100MG/5ML
  35. DIPHENHYDRAMINE [Concomitant]
     Active Substance: DIPHENHYDRAMINE
  36. ACETAMINOPHEN\HYDROCODONE [Concomitant]
     Active Substance: ACETAMINOPHEN\HYDROCODONE
     Dosage: DOSE- 5MG-325MG
  37. IMODIUM A-D [Concomitant]
     Active Substance: LOPERAMIDE HYDROCHLORIDE
  38. INSULIN GLARGINE [Concomitant]
     Active Substance: INSULIN GLARGINE
     Dosage: DOSE- (U-300) CONC. 300UNIT/ML PEN
     Route: 058
  39. LOPERAMIDE HYDROCHLORIDE [Concomitant]
     Active Substance: LOPERAMIDE HYDROCHLORIDE
     Dosage: DOSE- 2.5MG-0.025MG
  40. METHOCARBAMOL [Concomitant]
     Active Substance: METHOCARBAMOL
  41. ONDANSETRON HYDROCHLORIDE [Concomitant]
     Active Substance: ONDANSETRON HYDROCHLORIDE
  42. PIOGLITAZONE [Concomitant]
     Active Substance: PIOGLITAZONE
  43. SILDENAFIL [Concomitant]
     Active Substance: SILDENAFIL
  44. SILDENAFIL [Concomitant]
     Active Substance: SILDENAFIL
  45. VITAMIN B12 [Concomitant]
     Active Substance: CYANOCOBALAMIN
     Dosage: DOSE-1000MCG/ML
  46. VOLTAREN ARTHRITIS PAIN [Concomitant]
     Active Substance: DICLOFENAC SODIUM
     Route: 061

REACTIONS (4)
  - Plasma cell myeloma recurrent [Unknown]
  - Rash [Unknown]
  - Inability to afford medication [Unknown]
  - Fatigue [Unknown]
